FAERS Safety Report 8553501 (Version 2)
Quarter: 2012Q4

REPORT INFORMATION
  Report Type: 
  Country: US (occurrence: US)
  Receive Date: 20120327
  Receipt Date: 20121114
  Transmission Date: 20130627
  Serious: Yes (Death, Hospitalization, Other)
  Sender: FDA-Public Use
  Company Number: PHHY2011US25880

PATIENT
  Sex: Male

DRUGS (1)
  1. GLEEVEC [Suspect]
     Indication: CHRONIC MYELOID LEUKAEMIA
     Dosage: 100 mg, QID
     Route: 048
     Dates: start: 20070808

REACTIONS (2)
  - Death [Fatal]
  - Renal failure [Recovering/Resolving]
